FAERS Safety Report 4357928-0 (Version None)
Quarter: 2004Q2

REPORT INFORMATION
  Report Type: 
  Country: None (occurrence: None)
  Receive Date: 20040510
  Receipt Date: 20040422
  Transmission Date: 20050107
  Serious: Yes (Other)
  Sender: FDA-Public Use
  Company Number: 701915

PATIENT
  Age: 73 Year
  Sex: Female

DRUGS (1)
  1. AMEVIVE [Suspect]
     Dosage: 7.5 MG QW IV
     Route: 042

REACTIONS (1)
  - HEPATITIS B [None]
